FAERS Safety Report 11797186 (Version 1)
Quarter: 2015Q4

REPORT INFORMATION
  Report Type: Spontaneous
  Country: GB (occurrence: GB)
  Receive Date: 20151203
  Receipt Date: 20151203
  Transmission Date: 20160305
  Serious: Yes (Other)
  Sender: FDA-Public Use
  Company Number: GB-PFIZER INC-2015413632

PATIENT
  Age: 12 Year
  Sex: Male

DRUGS (1)
  1. GENOTROPIN [Suspect]
     Active Substance: SOMATROPIN
     Dosage: AT 0.4 TO 0.6MG , ALTERNATE DAY

REACTIONS (4)
  - Ear infection [Unknown]
  - Immune system disorder [Unknown]
  - Lower respiratory tract infection [Unknown]
  - Malaise [Unknown]
